FAERS Safety Report 17713508 (Version 2)
Quarter: 2020Q2

REPORT INFORMATION
  Report Type: Spontaneous
  Country: RO (occurrence: RO)
  Receive Date: 20200427
  Receipt Date: 20200507
  Transmission Date: 20200714
  Serious: Yes (Hospitalization, Other)
  Sender: FDA-Public Use
  Company Number: RO-MYLANLABS-2020M1041452

PATIENT
  Age: 55 Year
  Sex: Male

DRUGS (9)
  1. METOPROLOL. [Concomitant]
     Active Substance: METOPROLOL
     Indication: PRODUCT USED FOR UNKNOWN INDICATION
     Dosage: UNK
     Route: 065
  2. OMEPRAZOLE. [Concomitant]
     Active Substance: OMEPRAZOLE
     Indication: PRODUCT USED FOR UNKNOWN INDICATION
     Dosage: UNK
  3. BOSENTAN. [Suspect]
     Active Substance: BOSENTAN
     Indication: SKIN ULCER
     Dosage: UNK
     Route: 048
  4. PENTOXIFYLLINE. [Concomitant]
     Active Substance: PENTOXIFYLLINE
     Indication: VASODILATATION
     Dosage: UNK
  5. METHYLPREDNISOLONE. [Concomitant]
     Active Substance: METHYLPREDNISOLONE
     Indication: PRODUCT USED FOR UNKNOWN INDICATION
     Dosage: UNK
  6. CYCLOPHOSPHAMIDE. [Concomitant]
     Active Substance: CYCLOPHOSPHAMIDE
     Indication: PRODUCT USED FOR UNKNOWN INDICATION
     Dosage: UNK (INITIALLY 3 COURSES OF PULSE THERAPY, PRESENTLY ON ORAL THERAPY)
     Route: 048
  7. BOSENTAN. [Suspect]
     Active Substance: BOSENTAN
     Indication: SYSTEMIC SCLERODERMA
  8. AMLODIPINE [Concomitant]
     Active Substance: AMLODIPINE BESYLATE
     Indication: VASODILATATION
     Dosage: UNK
  9. SULODEXIDE [Concomitant]
     Active Substance: SULODEXIDE
     Indication: VASODILATATION
     Dosage: UNK

REACTIONS (28)
  - Pallor [Recovered/Resolved]
  - Leukopenia [Unknown]
  - Peripheral coldness [Recovered/Resolved]
  - Obesity [Unknown]
  - Radiotherapy to brain [Unknown]
  - Mitral valve prolapse [Unknown]
  - Pleural mass [Unknown]
  - Extremity necrosis [Unknown]
  - Biopsy lymph gland [Unknown]
  - Inflammation [Unknown]
  - Peripheral artery occlusion [Recovered/Resolved]
  - Endarterectomy [Unknown]
  - Cushing^s syndrome [Unknown]
  - Speech disorder [Unknown]
  - Dyslipidaemia [Unknown]
  - Glucose tolerance impaired [Unknown]
  - Metastatic neoplasm [Unknown]
  - Drug dependence [Unknown]
  - Pulse absent [Recovered/Resolved]
  - Anaemia [Unknown]
  - Hypertension [Unknown]
  - Lung adenocarcinoma [Unknown]
  - Metabolic syndrome [Unknown]
  - Paraesthesia [Recovered/Resolved]
  - Pain in extremity [Recovered/Resolved]
  - Aphasia [Unknown]
  - Hilar lymphadenopathy [Unknown]
  - Anxiety [Unknown]
